FAERS Safety Report 9694055 (Version 1)
Quarter: 2013Q4

REPORT INFORMATION
  Report Type: Spontaneous
  Country: US (occurrence: US)
  Receive Date: 20131118
  Receipt Date: 20131118
  Transmission Date: 20140711
  Serious: Yes (Other)
  Sender: FDA-Public Use
  Company Number: US-BRISTOL-MYERS SQUIBB COMPANY-19804095

PATIENT
  Sex: Female

DRUGS (3)
  1. BYETTA [Suspect]
     Indication: TYPE 2 DIABETES MELLITUS
     Dosage: RECENT DOSE MAY10
     Dates: start: 200802
  2. JANUVIA [Suspect]
     Indication: TYPE 2 DIABETES MELLITUS
     Dosage: LAST DOSE ON JAN08
     Dates: start: 200703
  3. VICTOZA [Suspect]
     Indication: TYPE 2 DIABETES MELLITUS

REACTIONS (1)
  - Pancreatic carcinoma [Unknown]
